FAERS Safety Report 4981089-8 (Version None)
Quarter: 2006Q2

REPORT INFORMATION
  Report Type: 
  Country: None (occurrence: None)
  Receive Date: 20060418
  Receipt Date: 20060329
  Transmission Date: 20061013
  Serious: No
  Sender: FDA-Public Use
  Company Number: US200603001815

PATIENT
  Age: 59 Year
  Sex: Female
  Weight: 59.4 kg

DRUGS (12)
  1. FORTEO [Suspect]
     Indication: OSTEOPOROSIS
     Dosage: SEE IMAGE
     Dates: start: 20030724, end: 20050310
  2. FORTEO [Concomitant]
  3. PREVACID [Concomitant]
  4. CITRACAL (CALCIUM CITRATE) [Concomitant]
  5. AMITRIPTYLINE HCL [Concomitant]
  6. PULMICORT [Concomitant]
  7. NASONEX [Concomitant]
  8. CLARINEX /DEN/ (LORATADINE, PSEUDOEPHEDRINE SULFATE) [Concomitant]
  9. MAXAIR [Concomitant]
  10. NORVASC /DEN/ (AMLODIPINE BESILATE) [Concomitant]
  11. GLUCOSAMINE [Concomitant]
  12. B12 (CYANOCOBALAMIN) [Concomitant]

REACTIONS (29)
  - ANXIETY [None]
  - ARTHRALGIA [None]
  - BACK INJURY [None]
  - BALANCE DISORDER [None]
  - BLINDNESS [None]
  - BONE PAIN [None]
  - CEREBROVASCULAR ACCIDENT [None]
  - COMPUTERISED TOMOGRAM ABNORMAL [None]
  - GLIOSIS [None]
  - HEADACHE [None]
  - HYPERACUSIS [None]
  - HYPOAESTHESIA [None]
  - INJECTION SITE REACTION [None]
  - INSOMNIA [None]
  - INTERVERTEBRAL DISC PROTRUSION [None]
  - LIGAMENT INJURY [None]
  - LUMBAR RADICULOPATHY [None]
  - MALAISE [None]
  - MENISCUS LESION [None]
  - MIGRAINE [None]
  - NAUSEA [None]
  - PAIN [None]
  - PALPITATIONS [None]
  - PHOTOPHOBIA [None]
  - SPINAL OSTEOARTHRITIS [None]
  - STRESS [None]
  - TENSION [None]
  - TENSION HEADACHE [None]
  - TINNITUS [None]
